FAERS Safety Report 7374371-0 (Version None)
Quarter: 2011Q1

REPORT INFORMATION
  Report Type: 
  Country: None (occurrence: None)
  Receive Date: 20110325
  Receipt Date: 20110321
  Transmission Date: 20110831
  Serious: Yes (Other)
  Sender: FDA-Public Use
  Company Number: US-PFIZER INC-2011062141

PATIENT
  Age: 60 Year
  Sex: Male

DRUGS (9)
  1. PHENYTOIN [Concomitant]
  2. SULFASALAZINE [Suspect]
     Indication: INFLAMMATORY BOWEL DISEASE
     Dosage: 500 MG, 2X/DAY
  3. OMEPRAZOLE [Concomitant]
  4. WARFARIN [Suspect]
     Indication: AORTIC VALVE REPLACEMENT
     Dosage: 40 MG, WEEKLY
  5. ACETAMINOPHEN AND HYDROCODONE BITARTRATE [Concomitant]
  6. SULFASALAZINE [Suspect]
     Dosage: 500 MG, 4X/DAY
  7. WARFARIN [Suspect]
     Indication: MITRAL VALVE REPLACEMENT
     Dosage: 42.5 MG, WEEKLY
  8. ALBUTEROL [Concomitant]
     Route: 055
  9. LISINOPRIL [Concomitant]

REACTIONS (2)
  - HYPOPROTHROMBINAEMIA [None]
  - DRUG INTERACTION [None]
